FAERS Safety Report 9511540 (Version 1)
Quarter: 2013Q3

REPORT INFORMATION
  Report Type: Spontaneous
  Country: US (occurrence: None)
  Receive Date: 20130909
  Receipt Date: 20130909
  Transmission Date: 20140515
  Serious: Yes (Other)
  Sender: FDA-Public Use
  Company Number: None

PATIENT
  Age: 51 Year
  Sex: Male
  Weight: 65.77 kg

DRUGS (1)
  1. FLOVENT [Suspect]
     Indication: ASTHMA
     Dosage: 1 INHALATIONS TWICE DAILY INHALATION
     Route: 055
     Dates: start: 20120502, end: 20120506

REACTIONS (6)
  - Dizziness [None]
  - Weight decreased [None]
  - Fatigue [None]
  - Dyspepsia [None]
  - Vomiting [None]
  - Vision blurred [None]
